FAERS Safety Report 21562371 (Version 1)
Quarter: 2022Q4

REPORT INFORMATION
  Report Type: Spontaneous
  Country: US (occurrence: US)
  Receive Date: 20221107
  Receipt Date: 20221107
  Transmission Date: 20230112
  Serious: No
  Sender: FDA-Public Use
  Company Number: US-GALDERMA-US2022001147

PATIENT
  Sex: Male

DRUGS (1)
  1. METRONIDAZOLE [Suspect]
     Active Substance: METRONIDAZOLE
     Indication: Rosacea
     Dosage: 1 DOSAGE FORM, QWK
     Route: 061
     Dates: start: 2020, end: 2020

REACTIONS (4)
  - Seborrhoea [Recovered/Resolved]
  - Drug ineffective [Not Recovered/Not Resolved]
  - Liquid product physical issue [Recovered/Resolved]
  - Poor quality product administered [Recovered/Resolved]

NARRATIVE: CASE EVENT DATE: 20200101
